FAERS Safety Report 23744348 (Version 2)
Quarter: 2024Q2

REPORT INFORMATION
  Report Type: Spontaneous
  Country: CN (occurrence: CN)
  Receive Date: 20240415
  Receipt Date: 20240423
  Transmission Date: 20240716
  Serious: Yes (Hospitalization)
  Sender: FDA-Public Use
  Company Number: CN-002147023-NVSC2024CN077927

PATIENT
  Age: 59 Year
  Sex: Male
  Weight: 50 kg

DRUGS (3)
  1. TRAMETINIB [Suspect]
     Active Substance: TRAMETINIB
     Indication: Immunosuppressant drug therapy
     Dosage: 2 MG, QD
     Route: 048
     Dates: start: 20210109
  2. CAMRELIZUMAB [Suspect]
     Active Substance: CAMRELIZUMAB
     Indication: Immunosuppressant drug therapy
     Dosage: 200 MG, 21D
     Route: 065
     Dates: start: 20210109
  3. LENVATINIB [Suspect]
     Active Substance: LENVATINIB
     Indication: Immunosuppressant drug therapy
     Dosage: UNK
     Route: 065
     Dates: start: 202103

REACTIONS (2)
  - Enteritis [Recovering/Resolving]
  - Product use in unapproved indication [Unknown]
